FAERS Safety Report 6646074-9 (Version None)
Quarter: 2010Q1

REPORT INFORMATION
  Report Type: 
  Country: None (occurrence: None)
  Receive Date: 20100323
  Receipt Date: 20100310
  Transmission Date: 20100710
  Serious: No
  Sender: FDA-Public Use
  Company Number: US-JNJFOC-20100207759

PATIENT
  Sex: Male
  Weight: 131.54 kg

DRUGS (10)
  1. DURAGESIC-100 [Suspect]
     Indication: ARTHRALGIA
     Route: 062
  2. DURAGESIC-100 [Suspect]
     Indication: BACK PAIN
     Route: 062
  3. DURAGESIC-100 [Suspect]
     Dosage: 100UG/HR+100UG/HR
     Route: 062
  4. DURAGESIC-100 [Suspect]
     Route: 062
  5. DURAGESIC-100 [Suspect]
     Route: 062
  6. DURAGESIC-100 [Suspect]
     Dosage: 100UG/HR+100UG/HR
     Route: 062
  7. OPANA [Suspect]
     Indication: ARTHRALGIA
     Route: 048
  8. OPANA [Suspect]
     Indication: BACK PAIN
     Route: 048
  9. PERCOCET [Concomitant]
     Indication: BREAKTHROUGH PAIN
     Route: 048
  10. LISINOPRIL [Concomitant]
     Indication: BLOOD PRESSURE
     Route: 048

REACTIONS (6)
  - ANXIETY [None]
  - APPLICATION SITE REACTION [None]
  - PRODUCT ADHESION ISSUE [None]
  - TREATMENT NONCOMPLIANCE [None]
  - WITHDRAWAL SYNDROME [None]
  - WRONG TECHNIQUE IN DRUG USAGE PROCESS [None]
